FAERS Safety Report 15990303 (Version 1)
Quarter: 2019Q1

REPORT INFORMATION
  Report Type: Spontaneous
  Country: US (occurrence: US)
  Receive Date: 20190221
  Receipt Date: 20190221
  Transmission Date: 20190418
  Serious: No
  Sender: FDA-Public Use
  Company Number: US-ALLERGAN-1857348US

PATIENT
  Sex: Female

DRUGS (1)
  1. FLUOROMETHOLONE, 0.1% [Suspect]
     Active Substance: FLUOROMETHOLONE
     Indication: POST PROCEDURAL INFLAMMATION
     Dosage: UNK
     Route: 047
     Dates: start: 20181111

REACTIONS (2)
  - Product container issue [Unknown]
  - Incorrect dose administered by product [Unknown]
